FAERS Safety Report 8807916 (Version 1)
Quarter: 2012Q4

REPORT INFORMATION
  Report Type: 
  Country: US (occurrence: US)
  Receive Date: 20120925
  Receipt Date: 20120925
  Transmission Date: 20130627
  Serious: No
  Sender: FDA-Public Use
  Company Number: US-ASTRAZENECA-2012SE70674

PATIENT
  Age: 76 Year
  Sex: Female
  Weight: 81.6 kg

DRUGS (8)
  1. RHINOCORT AQUA [Suspect]
     Indication: CHRONIC OBSTRUCTIVE PULMONARY DISEASE
     Dosage: 1 SPRAY PER NOSTRIL, ONCE A DAY
     Route: 045
  2. ATENOLOL [Suspect]
     Route: 065
  3. SPIRIVA [Concomitant]
  4. HCTZ [Concomitant]
  5. VITAMIN B12 [Concomitant]
  6. LIPITOR [Concomitant]
  7. CALCIUM CITRATE [Concomitant]
  8. VITAMIN D [Concomitant]

REACTIONS (3)
  - Expired drug administered [Unknown]
  - Epistaxis [Unknown]
  - Therapeutic response unexpected [Unknown]
